FAERS Safety Report 26124425 (Version 1)
Quarter: 2025Q4

REPORT INFORMATION
  Report Type: Spontaneous
  Country: KR (occurrence: KR)
  Receive Date: 20251205
  Receipt Date: 20251205
  Transmission Date: 20260117
  Serious: Yes (Other)
  Sender: Kenvue
  Company Number: KR-UCBSA-2025075883

PATIENT
  Weight: 47 kg

DRUGS (1)
  1. CETIRIZINE HYDROCHLORIDE [Suspect]
     Active Substance: CETIRIZINE HYDROCHLORIDE
     Indication: Hyperprolactinaemia
     Dosage: 1 DOSAGE FORM, ONCE DAILY (QD)
     Route: 065

REACTIONS (2)
  - Loss of consciousness [Recovered/Resolved]
  - Rash [Recovered/Resolved]
